FAERS Safety Report 5477231-5 (Version None)
Quarter: 2007Q4

REPORT INFORMATION
  Report Type: 
  Country: None (occurrence: None)
  Receive Date: 20071004
  Receipt Date: 20070926
  Transmission Date: 20080405
  Serious: Yes (Hospitalization)
  Sender: FDA-Public Use
  Company Number: US-ELI_LILLY_AND_COMPANY-US200709006449

PATIENT
  Age: 83 Year
  Sex: Male

DRUGS (3)
  1. HUMULIN N [Suspect]
     Dates: start: 20070801
  2. CHEMOTHERAPEUTICS NOS [Concomitant]
  3. PREDNISONE [Concomitant]

REACTIONS (1)
  - NON-HODGKIN'S LYMPHOMA [None]
